FAERS Safety Report 4304248-6 (Version None)
Quarter: 2004Q1

REPORT INFORMATION
  Report Type: 
  Country: None (occurrence: None)
  Receive Date: 20040225
  Receipt Date: 20040213
  Transmission Date: 20041129
  Serious: Yes (Other)
  Sender: FDA-Public Use
  Company Number: WAES 0402AUS00124

PATIENT
  Age: 62 Year
  Sex: Male

DRUGS (1)
  1. ZOCOR [Suspect]
     Route: 048
     Dates: start: 20010717, end: 20011026

REACTIONS (3)
  - FATIGUE [None]
  - MYALGIA [None]
  - PANCYTOPENIA [None]
